FAERS Safety Report 10529347 (Version 2)
Quarter: 2014Q4

REPORT INFORMATION
  Report Type: Report from Study
  Country: FR (occurrence: FR)
  Receive Date: 20141021
  Receipt Date: 20141215
  Transmission Date: 20150528
  Serious: Yes (Death)
  Sender: FDA-Public Use
  Company Number: FR-ROCHE-1476913

PATIENT
  Sex: Male
  Weight: 78 kg

DRUGS (2)
  1. RITUXIMAB [Suspect]
     Active Substance: RITUXIMAB
     Indication: IMMUNE THROMBOCYTOPENIC PURPURA
     Dosage: DATE OF LAST DOSE PRIOR TO SAE: 29/JUL/2011
     Route: 042
     Dates: start: 20110624
  2. PREDNISONE. [Concomitant]
     Active Substance: PREDNISONE

REACTIONS (2)
  - Death [Fatal]
  - Product use issue [Unknown]
